FAERS Safety Report 21537346 (Version 1)
Quarter: 2022Q4

REPORT INFORMATION
  Report Type: Spontaneous
  Country: US (occurrence: US)
  Receive Date: 20221101
  Receipt Date: 20221101
  Transmission Date: 20230113
  Serious: Yes (Other)
  Sender: FDA-Public Use
  Company Number: US-MYLANLABS-2022M1119965

PATIENT
  Sex: Female

DRUGS (5)
  1. SILDENAFIL [Suspect]
     Active Substance: SILDENAFIL
     Indication: Pulmonary arterial hypertension
     Dosage: UNK
     Route: 065
  2. PREDNISOLONE [Suspect]
     Active Substance: PREDNISOLONE
     Indication: Glycogen storage disorder
     Dosage: UNK
     Route: 065
  3. BOSENTAN [Suspect]
     Active Substance: BOSENTAN
     Indication: Product used for unknown indication
     Dosage: UNK
     Route: 065
  4. OXYGEN [Suspect]
     Active Substance: OXYGEN
     Indication: Product used for unknown indication
     Dosage: UNK, WEANED OFF DAYTIME SUPPLEMENTAL OXYGEN AT 18 MONTHS
     Route: 065
  5. TADALAFIL [Suspect]
     Active Substance: TADALAFIL
     Indication: Product used for unknown indication
     Dosage: UNK, WAS INITIATED AT 3.5 YEARS
     Route: 065

REACTIONS (5)
  - Respiratory distress [Unknown]
  - Oxygen saturation decreased [Unknown]
  - Cyanosis [Unknown]
  - Small patella syndrome [Unknown]
  - Gastrooesophageal reflux disease [Unknown]
